APPROVED DRUG PRODUCT: MORPHINE SULFATE
Active Ingredient: MORPHINE SULFATE
Strength: 20MG/5ML
Dosage Form/Route: SOLUTION;ORAL
Application: A211454 | Product #002 | TE Code: AA
Applicant: WINDER LABORATOIRIES LLC
Approved: Feb 12, 2021 | RLD: No | RS: No | Type: RX